FAERS Safety Report 7971381-7 (Version None)
Quarter: 2011Q4

REPORT INFORMATION
  Report Type: 
  Country: None (occurrence: None)
  Receive Date: 20111212
  Receipt Date: 20111201
  Transmission Date: 20120403
  Serious: Yes (Disabling, Other)
  Sender: FDA-Public Use
  Company Number: US-MERCK-1107USA02570

PATIENT
  Age: 75 Year
  Sex: Female
  Weight: 61 kg

DRUGS (9)
  1. FOSAMAX [Suspect]
     Route: 048
     Dates: start: 19950101
  2. BONIVA [Suspect]
     Indication: OSTEOPOROSIS
     Route: 048
     Dates: start: 20060601, end: 20070301
  3. BONIVA [Suspect]
     Indication: OSTEOPENIA
     Route: 048
     Dates: start: 20060601, end: 20070301
  4. FOSAMAX [Suspect]
     Indication: OSTEOPENIA
     Route: 048
     Dates: start: 19990101, end: 20060601
  5. ACTONEL [Suspect]
     Indication: OSTEOPOROSIS
     Route: 048
     Dates: start: 20070301, end: 20081201
  6. FOSAMAX [Suspect]
     Indication: OSTEOPOROSIS
     Route: 048
     Dates: start: 19990101, end: 20060601
  7. FORTEO [Suspect]
     Indication: OSTEOPOROSIS
     Route: 065
  8. FOSAMAX [Suspect]
     Route: 048
     Dates: start: 19950101
  9. ACTONEL [Suspect]
     Indication: OSTEOPENIA
     Route: 048
     Dates: start: 20070301, end: 20081201

REACTIONS (20)
  - ANGINA PECTORIS [None]
  - JAW DISORDER [None]
  - MYOFASCIAL PAIN SYNDROME [None]
  - DRUG INEFFECTIVE [None]
  - OSTEONECROSIS OF JAW [None]
  - OSTEONECROSIS [None]
  - GLOSSITIS [None]
  - STOMATITIS [None]
  - SENSITIVITY OF TEETH [None]
  - BLOOD CHOLESTEROL INCREASED [None]
  - BACK PAIN [None]
  - TOOTH DISORDER [None]
  - ORAL INFECTION [None]
  - CORONARY ARTERY DISEASE [None]
  - PULMONARY EMBOLISM [None]
  - ARTHRALGIA [None]
  - ORAL TORUS [None]
  - DEEP VEIN THROMBOSIS [None]
  - GLOSSODYNIA [None]
  - OSTEOARTHRITIS [None]
